FAERS Safety Report 9522521 (Version 2)
Quarter: 2013Q3

REPORT INFORMATION
  Report Type: Spontaneous
  Country: CA (occurrence: None)
  Receive Date: 20130903
  Receipt Date: 20130911
  Transmission Date: 20140515
  Serious: Yes (Hospitalization, Other)
  Sender: FDA-Public Use
  Company Number: 2013037644

PATIENT
  Age: 78 Year
  Sex: Male

DRUGS (1)
  1. PRIVIGEN (IMMUNE GLOBULIN INTRAVENOUS (HUMAN) 10% LIQUID) [Suspect]
     Indication: POLYNEUROPATHY
     Dosage: 40 G TOTAL, RATE UP TO 288 ML/H
     Route: 042
     Dates: start: 20130802, end: 20130802

REACTIONS (22)
  - Anaphylactic reaction [None]
  - Acute respiratory distress syndrome [None]
  - Abdominal pain lower [None]
  - Dyspnoea [None]
  - Pleural effusion [None]
  - Back pain [None]
  - Atelectasis [None]
  - Hypertension [None]
  - Tachycardia [None]
  - Tachypnoea [None]
  - Hypoxia [None]
  - Aggression [None]
  - Chills [None]
  - Agitation [None]
  - Somnolence [None]
  - Disorientation [None]
  - Impulsive behaviour [None]
  - Depressed level of consciousness [None]
  - Anxiety [None]
  - Dyspnoea exertional [None]
  - General physical health deterioration [None]
  - Off label use [None]
